FAERS Safety Report 10527632 (Version 2)
Quarter: 2014Q4

REPORT INFORMATION
  Report Type: Spontaneous
  Country: US (occurrence: US)
  Receive Date: 20141020
  Receipt Date: 20141201
  Transmission Date: 20150528
  Serious: No
  Sender: FDA-Public Use
  Company Number: US-PFIZER INC-2014287710

PATIENT
  Age: 55 Year
  Sex: Female
  Weight: 89 kg

DRUGS (6)
  1. FISH OIL [Concomitant]
     Active Substance: FISH OIL
     Dosage: 1200 MG ( 2 CAPSULES) DAILY
  2. PRILOSEC [Concomitant]
     Active Substance: OMEPRAZOLE MAGNESIUM
     Dosage: 40 MG, 1X/DAY
  3. CRANBERRY. [Concomitant]
     Active Substance: CRANBERRY
     Dosage: 450 MG, DAILY
  4. QVAR [Concomitant]
     Active Substance: BECLOMETHASONE DIPROPIONATE
     Indication: ASTHMA
     Dosage: TWO PUFFS, 2X/DAY
  5. FLORAGYN [Concomitant]
     Dosage: 2 DF, 1X/DAY
  6. NEURONTIN [Suspect]
     Active Substance: GABAPENTIN
     Indication: PAIN IN EXTREMITY
     Dosage: 1200MG, (300 MG: 1 IN MORNING, 1 IN AFTERNOON, 2 AT BEDTIME)
     Route: 048
     Dates: start: 20140922

REACTIONS (2)
  - Drug ineffective for unapproved indication [Unknown]
  - Blood pressure increased [Unknown]

NARRATIVE: CASE EVENT DATE: 201409
